FAERS Safety Report 22588322 (Version 1)
Quarter: 2023Q2

REPORT INFORMATION
  Report Type: Spontaneous
  Country: FR (occurrence: FR)
  Receive Date: 20230612
  Receipt Date: 20230612
  Transmission Date: 20230721
  Serious: Yes (Other)
  Sender: FDA-Public Use
  Company Number: FR-AFSSAPS-AVNT2023000442

PATIENT
  Age: 40 Year
  Sex: Male

DRUGS (3)
  1. OXYCODONE [Suspect]
     Active Substance: OXYCODONE
     Indication: Product used for unknown indication
     Dosage: UNK(30-0-30 MG LP 5MG/4H LI AND UP TO 100 MG IN 1 DOSE)
     Route: 048
     Dates: start: 202012
  2. ALCOHOL [Suspect]
     Active Substance: ALCOHOL
     Indication: Product used for unknown indication
     Dosage: UNK(3/4 BOTTLE OF RUM/DAY)
     Route: 048
     Dates: start: 2012
  3. CANNABIS SATIVA SUBSP. INDICA TOP [Suspect]
     Active Substance: CANNABIS SATIVA SUBSP. INDICA TOP
     Indication: Product used for unknown indication
     Dosage: UNK(10 JOINTS/D I.E. 2 TO 3 G/D)

REACTIONS (1)
  - Drug dependence [Not Recovered/Not Resolved]
